FAERS Safety Report 20963188 (Version 1)
Quarter: 2022Q2

REPORT INFORMATION
  Report Type: Report from Study
  Country: CA (occurrence: CA)
  Receive Date: 20220615
  Receipt Date: 20220615
  Transmission Date: 20220721
  Serious: Yes (Death, Hospitalization, Other)
  Sender: FDA-Public Use
  Company Number: CA-HLS-202005270

PATIENT
  Age: 18 Year
  Sex: Male
  Weight: 55 kg

DRUGS (11)
  1. CLOZARIL [Suspect]
     Active Substance: CLOZAPINE
     Indication: Schizophrenia
     Route: 048
     Dates: start: 20171127
  2. CLOZARIL [Suspect]
     Active Substance: CLOZAPINE
     Indication: Schizophrenia
     Dosage: 300MG
     Route: 048
     Dates: end: 20180713
  3. CLOZARIL [Suspect]
     Active Substance: CLOZAPINE
     Indication: Schizophrenia
     Dosage: DRUG START DATE:23-FEB-2022
     Route: 048
  4. FLUOXETINE [Concomitant]
     Active Substance: FLUOXETINE HYDROCHLORIDE
     Indication: Anxiety
     Dosage: INCREASED DOSE
     Route: 048
     Dates: end: 20180601
  5. FLUOXETINE [Concomitant]
     Active Substance: FLUOXETINE HYDROCHLORIDE
     Indication: Depressed mood
     Dosage: INCREASED DOSE
     Route: 048
     Dates: end: 20180601
  6. FLUOXETINE [Concomitant]
     Active Substance: FLUOXETINE HYDROCHLORIDE
     Indication: Obsessive-compulsive disorder
     Dosage: INCREASED DOSE
     Route: 048
     Dates: end: 20180601
  7. FLUOXETINE [Concomitant]
     Active Substance: FLUOXETINE HYDROCHLORIDE
     Indication: Anxiety
     Dosage: UP TO 60MG DAILY
     Route: 048
     Dates: start: 20171007, end: 20180701
  8. FLUOXETINE [Concomitant]
     Active Substance: FLUOXETINE HYDROCHLORIDE
     Indication: Depressed mood
     Dosage: UP TO 60MG DAILY
     Route: 048
     Dates: start: 20171007, end: 20180701
  9. FLUOXETINE [Concomitant]
     Active Substance: FLUOXETINE HYDROCHLORIDE
     Indication: Obsessive-compulsive disorder
     Dosage: UP TO 60MG DAILY
     Route: 048
     Dates: start: 20171007, end: 20180701
  10. LORAZEPAM [Concomitant]
     Active Substance: LORAZEPAM
     Indication: Anxiety
     Dosage: UP TO 4MG/DAY AS NEEDED
     Route: 048
     Dates: start: 201802, end: 20180505
  11. LORAZEPAM [Concomitant]
     Active Substance: LORAZEPAM
     Indication: Obsessive-compulsive disorder
     Dosage: UP TO 4MG/DAY AS NEEDED
     Route: 048
     Dates: start: 201802, end: 20180505

REACTIONS (2)
  - Death [Fatal]
  - Obsessive-compulsive disorder [Not Recovered/Not Resolved]

NARRATIVE: CASE EVENT DATE: 20180201
